FAERS Safety Report 21340889 (Version 4)
Quarter: 2025Q1

REPORT INFORMATION
  Report Type: Report from Study
  Country: JP (occurrence: JP)
  Receive Date: 20220916
  Receipt Date: 20250110
  Transmission Date: 20250409
  Serious: Yes (Death)
  Sender: AMGEN
  Company Number: JP-AMGEN-JPNSP2022157979

PATIENT
  Age: 66 Year
  Sex: Male

DRUGS (13)
  1. SOTORASIB [Suspect]
     Active Substance: SOTORASIB
     Indication: Non-small cell lung cancer stage IV
     Dosage: 960 MILLIGRAM, QD
     Route: 048
     Dates: start: 20220629, end: 20220724
  2. SOTORASIB [Suspect]
     Active Substance: SOTORASIB
     Indication: K-ras gene mutation
  3. ESZOPICLONE [Concomitant]
     Active Substance: ESZOPICLONE
  4. BROTIZOLAM [Concomitant]
     Active Substance: BROTIZOLAM
  5. LEVETIRACETAM [Concomitant]
     Active Substance: LEVETIRACETAM
  6. DULOXETINE [Concomitant]
     Active Substance: DULOXETINE
  7. ACETAMINOPHEN [Concomitant]
     Active Substance: ACETAMINOPHEN
  8. MS CONTIN [Concomitant]
     Active Substance: MORPHINE SULFATE
  9. DECADRON [Concomitant]
     Active Substance: DEXAMETHASONE
  10. ISOSORBIDE [Concomitant]
     Active Substance: ISOSORBIDE
  11. SULFAMETHOXAZOLE\TRIMETHOPRIM [Concomitant]
     Active Substance: SULFAMETHOXAZOLE\TRIMETHOPRIM
  12. ALLOID G [Concomitant]
     Active Substance: SODIUM ALGINATE
  13. LOXOPROFEN SODIUM [Concomitant]
     Active Substance: LOXOPROFEN SODIUM

REACTIONS (1)
  - Non-small cell lung cancer [Fatal]

NARRATIVE: CASE EVENT DATE: 20220720
